FAERS Safety Report 13573523 (Version 4)
Quarter: 2018Q1

REPORT INFORMATION
  Report Type: Report from Study
  Country: PL (occurrence: PL)
  Receive Date: 20170523
  Receipt Date: 20180222
  Transmission Date: 20180508
  Serious: Yes (Hospitalization)
  Sender: FDA-Public Use
  Company Number: PL-TAKEDA-2017MPI004472

PATIENT
  Age: 59 Year
  Sex: Female
  Weight: 80 kg

DRUGS (1)
  1. IXAZOMIB [Suspect]
     Active Substance: IXAZOMIB
     Indication: PLASMA CELL MYELOMA
     Dosage: 3 MG, UNK
     Route: 048
     Dates: start: 20150219, end: 20170420

REACTIONS (1)
  - Sinusitis [Recovered/Resolved with Sequelae]

NARRATIVE: CASE EVENT DATE: 20170512
